FAERS Safety Report 13023771 (Version 1)
Quarter: 2016Q4

REPORT INFORMATION
  Report Type: Spontaneous
  Country: US (occurrence: US)
  Receive Date: 20161213
  Receipt Date: 20161213
  Transmission Date: 20170207
  Serious: Yes (Life-Threatening)
  Sender: FDA-Public Use
  Company Number: None

PATIENT
  Age: 56 Year
  Sex: Female
  Weight: 89.55 kg

DRUGS (4)
  1. SINGULAIR [Concomitant]
     Active Substance: MONTELUKAST SODIUM
  2. ALEVE [Suspect]
     Active Substance: NAPROXEN SODIUM
     Indication: PROCEDURAL PAIN
     Dosage: ?          QUANTITY:2 TABLET(S);OTHER FREQUENCY:AFTER PROCEDURE;?
     Route: 048
     Dates: start: 20161212, end: 20161212
  3. LOSARTAN. [Concomitant]
     Active Substance: LOSARTAN
  4. TRAZODONE [Concomitant]
     Active Substance: TRAZODONE HYDROCHLORIDE

REACTIONS (12)
  - Pharyngeal oedema [None]
  - Dizziness [None]
  - Pruritus [None]
  - Heart rate decreased [None]
  - Blood pressure decreased [None]
  - Erythema [None]
  - Drug hypersensitivity [None]
  - Fatigue [None]
  - Rash generalised [None]
  - Feeling hot [None]
  - Loss of consciousness [None]
  - Feeling cold [None]

NARRATIVE: CASE EVENT DATE: 20161212
